FAERS Safety Report 4450352-1 (Version None)
Quarter: 2004Q3

REPORT INFORMATION
  Report Type: 
  Country: None (occurrence: None)
  Receive Date: 20040915
  Receipt Date: 20040903
  Transmission Date: 20050211
  Serious: Yes (Hospitalization, Other)
  Sender: FDA-Public Use
  Company Number: USA-2004-0016201

PATIENT
  Age: 39 Year
  Sex: Female

DRUGS (3)
  1. OXYCODONE HCL [Suspect]
     Indication: PAIN
  2. VALIUM [Concomitant]
  3. REMERON [Concomitant]

REACTIONS (7)
  - ANXIETY [None]
  - CHEST PAIN [None]
  - DRUG ABUSER [None]
  - ELECTROCARDIOGRAM T WAVE INVERSION [None]
  - HYPOAESTHESIA [None]
  - NAUSEA [None]
  - VOMITING [None]
